FAERS Safety Report 19313511 (Version 1)
Quarter: 2021Q2

REPORT INFORMATION
  Report Type: Spontaneous
  Country: US (occurrence: US)
  Receive Date: 20210527
  Receipt Date: 20210527
  Transmission Date: 20210717
  Serious: No
  Sender: FDA-Public Use
  Company Number: US-BIOGEN-2021BI01007562

PATIENT
  Age: 66 Year
  Sex: Male

DRUGS (3)
  1. VUMERITY [Suspect]
     Active Substance: DIROXIMEL FUMARATE
     Indication: MULTIPLE SCLEROSIS
     Route: 048
     Dates: start: 20210426
  2. VUMERITY [Suspect]
     Active Substance: DIROXIMEL FUMARATE
     Dosage: TAKE ONE CAPSULE (231MG) BY MOUTH TWICE DAILY FOR THE FIRST 7 DAYS, THEREAFTER TAKE TWO CAPSULES ...
     Route: 048
  3. VUMERITY [Suspect]
     Active Substance: DIROXIMEL FUMARATE
     Route: 048
     Dates: start: 20210427

REACTIONS (8)
  - Balance disorder [Not Recovered/Not Resolved]
  - Rash pruritic [Unknown]
  - Sleep disorder [Unknown]
  - Fall [Recovered/Resolved]
  - Clumsiness [Not Recovered/Not Resolved]
  - Flushing [Recovered/Resolved]
  - Dizziness [Not Recovered/Not Resolved]
  - Feeling drunk [Unknown]

NARRATIVE: CASE EVENT DATE: 2021
